FAERS Safety Report 16259301 (Version 1)
Quarter: 2019Q2

REPORT INFORMATION
  Report Type: Spontaneous
  Country: CN (occurrence: CN)
  Receive Date: 20190501
  Receipt Date: 20190501
  Transmission Date: 20190711
  Serious: Yes (Hospitalization)
  Sender: FDA-Public Use
  Company Number: PHHY2019CN098114

PATIENT
  Age: 56 Year
  Sex: Male

DRUGS (30)
  1. TACROLIMUS. [Suspect]
     Active Substance: TACROLIMUS
     Indication: RENAL TRANSPLANT
     Dosage: 3 MG, Q12H
     Route: 065
     Dates: start: 20170722, end: 20170726
  2. TACROLIMUS. [Suspect]
     Active Substance: TACROLIMUS
     Dosage: IN THE MORNING 3MG, IN THE EVENING 4MG
     Route: 065
     Dates: start: 20170814, end: 20170819
  3. TACROLIMUS. [Suspect]
     Active Substance: TACROLIMUS
     Dosage: 3.5 MG, Q12H
     Route: 065
     Dates: start: 20170820, end: 20170826
  4. TACROLIMUS. [Suspect]
     Active Substance: TACROLIMUS
     Dosage: 5 MG, Q12H
     Route: 065
     Dates: start: 20170827, end: 20170904
  5. PREDNISONE. [Suspect]
     Active Substance: PREDNISONE
     Indication: IMMUNOSUPPRESSANT DRUG THERAPY
     Dosage: 70 MG, UNK
     Route: 065
     Dates: start: 20170726
  6. ZOLPIDEM [Concomitant]
     Active Substance: ZOLPIDEM\ZOLPIDEM TARTRATE
     Indication: ANXIETY
     Dosage: 5 MG, QN
     Route: 065
  7. MYCOPHENOLATE [Suspect]
     Active Substance: MYCOPHENOLIC ACID
     Dosage: IN THE MORNING 720MG, IN THE EVENING 540MG
     Route: 065
     Dates: start: 20170730, end: 20170918
  8. ZOLPIDEM [Concomitant]
     Active Substance: ZOLPIDEM\ZOLPIDEM TARTRATE
     Indication: INSOMNIA
  9. BASILIXIMAB [Suspect]
     Active Substance: BASILIXIMAB
     Indication: RENAL TRANSPLANT
     Dosage: 20 MG, UNK
     Route: 065
  10. METHYLPREDNISOLONE. [Suspect]
     Active Substance: METHYLPREDNISOLONE
     Indication: RENAL TRANSPLANT
     Dosage: 1000 MG, QD
     Route: 065
     Dates: start: 20170721
  11. MYCOPHENOLATE [Suspect]
     Active Substance: MYCOPHENOLIC ACID
     Indication: IMMUNOSUPPRESSANT DRUG THERAPY
     Dosage: 540 MG, Q12H
     Route: 065
     Dates: start: 20170725, end: 20170729
  12. TACROLIMUS. [Suspect]
     Active Substance: TACROLIMUS
     Dosage: IN THE MORNING 5MG, IN THE EVENING 4MG
     Route: 065
     Dates: start: 20170905, end: 20170914
  13. PREDNISONE. [Suspect]
     Active Substance: PREDNISONE
     Dosage: 20 MG, UNK
     Route: 065
     Dates: start: 20170808, end: 20170823
  14. PREDNISONE. [Suspect]
     Active Substance: PREDNISONE
     Dosage: 30 MG, UNK
     Route: 065
     Dates: start: 20170904, end: 20170906
  15. TACROLIMUS. [Suspect]
     Active Substance: TACROLIMUS
     Dosage: 1 MG, Q12H
     Route: 065
     Dates: start: 20170919, end: 20170925
  16. PREDNISONE. [Suspect]
     Active Substance: PREDNISONE
     Dosage: 30 MG, UNK
     Route: 065
     Dates: start: 20170730
  17. PREDNISONE. [Suspect]
     Active Substance: PREDNISONE
     Dosage: 40 MG, UNK
     Route: 065
     Dates: start: 20170824, end: 20170903
  18. MYCOPHENOLATE [Suspect]
     Active Substance: MYCOPHENOLIC ACID
     Indication: RENAL TRANSPLANT
     Dosage: 720 MG, Q12H
     Route: 065
     Dates: start: 20170722, end: 20170724
  19. MYCOPHENOLATE [Suspect]
     Active Substance: MYCOPHENOLIC ACID
     Dosage: 360 MG, Q12H
     Route: 065
     Dates: start: 20170919, end: 20170925
  20. TACROLIMUS. [Suspect]
     Active Substance: TACROLIMUS
     Indication: IMMUNOSUPPRESSANT DRUG THERAPY
     Dosage: 4 MG, Q12H
     Route: 065
     Dates: start: 20170727, end: 20170813
  21. METHYLPREDNISOLONE. [Suspect]
     Active Substance: METHYLPREDNISOLONE
     Dosage: 360 MG, UNK
     Route: 065
     Dates: start: 20170731, end: 20170801
  22. PREDNISONE. [Suspect]
     Active Substance: PREDNISONE
     Indication: RENAL TRANSPLANT
     Dosage: 80 MG, UNK
     Route: 065
     Dates: start: 20170725
  23. OMEPRAZOLE. [Concomitant]
     Active Substance: OMEPRAZOLE
     Indication: PRODUCT USED FOR UNKNOWN INDICATION
     Dosage: UNK
     Route: 065
  24. PREDNISONE. [Suspect]
     Active Substance: PREDNISONE
     Dosage: 60MG DECREASED TO 40MG
     Route: 065
     Dates: start: 20170727, end: 20170729
  25. BASILIXIMAB [Suspect]
     Active Substance: BASILIXIMAB
     Indication: IMMUNOSUPPRESSANT DRUG THERAPY
  26. TACROLIMUS. [Suspect]
     Active Substance: TACROLIMUS
     Dosage: 2 MG, Q12H
     Route: 065
     Dates: start: 20170915, end: 20170918
  27. METHYLPREDNISOLONE. [Suspect]
     Active Substance: METHYLPREDNISOLONE
     Indication: IMMUNOSUPPRESSANT DRUG THERAPY
     Dosage: 500 MG, UNK
     Route: 065
     Dates: start: 20170722, end: 20170724
  28. METHYLPREDNISOLONE. [Suspect]
     Active Substance: METHYLPREDNISOLONE
     Dosage: 360 MG, UNK
     Route: 065
     Dates: start: 20170908, end: 20170910
  29. PREDNISONE. [Suspect]
     Active Substance: PREDNISONE
     Dosage: 80MG DECREASED TO 30MG
     Route: 065
     Dates: start: 20170802, end: 20170807
  30. PREDNISONE. [Suspect]
     Active Substance: PREDNISONE
     Dosage: 25 MG, UNK
     Route: 065
     Dates: start: 20170907

REACTIONS (7)
  - Pyrexia [Recovering/Resolving]
  - Mucormycosis [Recovering/Resolving]
  - Acinetobacter infection [Unknown]
  - Abdominal pain [Unknown]
  - Blood creatinine increased [Unknown]
  - Product use in unapproved indication [Unknown]
  - Abdominal pain lower [Unknown]
